FAERS Safety Report 25331828 (Version 1)
Quarter: 2025Q2

REPORT INFORMATION
  Report Type: Report from Study
  Country: ES (occurrence: ES)
  Receive Date: 20250519
  Receipt Date: 20250519
  Transmission Date: 20250716
  Serious: Yes (Other)
  Sender: TEVA
  Company Number: None

PATIENT
  Age: 81 Year
  Sex: Male
  Weight: 75.5 kg

DRUGS (1)
  1. TRAMADOL [Suspect]
     Active Substance: TRAMADOL
     Indication: Back pain
     Route: 048
     Dates: start: 20240319

REACTIONS (10)
  - Respiratory distress [Unknown]
  - Muscular weakness [Unknown]
  - Hypoaesthesia [Unknown]
  - Somnolence [Unknown]
  - Fatigue [Unknown]
  - Oedema [Unknown]
  - Muscle contractions involuntary [Unknown]
  - Rash [Unknown]
  - Dry mouth [Unknown]
  - Pruritus [Unknown]

NARRATIVE: CASE EVENT DATE: 20240319
